FAERS Safety Report 24437929 (Version 1)
Quarter: 2024Q4

REPORT INFORMATION
  Report Type: Spontaneous
  Country: US (occurrence: US)
  Receive Date: 20241015
  Receipt Date: 20241015
  Transmission Date: 20250114
  Serious: No
  Sender: ABBVIE
  Company Number: US-ABBVIE-5963948

PATIENT
  Age: 14 Year
  Sex: Female
  Weight: 78 kg

DRUGS (4)
  1. BOTOX [Suspect]
     Active Substance: ONABOTULINUMTOXINA
     Indication: Hyperhidrosis
     Route: 030
     Dates: start: 20240613, end: 20240613
  2. BOTOX [Suspect]
     Active Substance: ONABOTULINUMTOXINA
     Indication: Hyperhidrosis
     Dosage: TIME INTERVAL: AS NECESSARY: FORM STRENGTH: 100UNIT?ONGOING
     Route: 065
     Dates: start: 20240912, end: 20240912
  3. RETIN-A [Concomitant]
     Active Substance: TRETINOIN
     Indication: Acne
  4. QBREXZA [Concomitant]
     Active Substance: GLYCOPYRRONIUM TOSYLATE
     Indication: Hyperhidrosis

REACTIONS (1)
  - Drug ineffective [Not Recovered/Not Resolved]

NARRATIVE: CASE EVENT DATE: 20241003
